FAERS Safety Report 18649915 (Version 1)
Quarter: 2020Q4

REPORT INFORMATION
  Report Type: Report from Study
  Country: US (occurrence: US)
  Receive Date: 20201222
  Receipt Date: 20201222
  Transmission Date: 20210114
  Serious: No
  Sender: FDA-Public Use
  Company Number: US-AGIOS-2012US02353

PATIENT

DRUGS (1)
  1. TIBSOVO [Suspect]
     Active Substance: IVOSIDENIB
     Indication: NEOPLASM
     Dosage: 500 MILLIGRAM (TWO 250MG TABLETS), QD
     Route: 048

REACTIONS (2)
  - Off label use [Unknown]
  - Rash pruritic [Unknown]
